FAERS Safety Report 8420335-5 (Version None)
Quarter: 2012Q2

REPORT INFORMATION
  Report Type: 
  Country: None (occurrence: None)
  Receive Date: 20120607
  Receipt Date: 20120530
  Transmission Date: 20120825
  Serious: Yes (Other)
  Sender: FDA-Public Use
  Company Number: US-US-EMD SERONO, INC.-7024963

PATIENT
  Sex: Female

DRUGS (6)
  1. IBUPROFEN [Concomitant]
     Indication: PREMEDICATION
  2. REBIF [Suspect]
     Indication: MULTIPLE SCLEROSIS
     Route: 058
     Dates: start: 20100726
  3. REBIF [Suspect]
     Route: 058
     Dates: start: 20120301
  4. BENADRYL [Concomitant]
     Indication: PREMEDICATION
  5. CYMBALTA [Concomitant]
     Indication: MOOD SWINGS
     Route: 048
  6. ATIVAN [Concomitant]
     Indication: PANIC DISORDER

REACTIONS (3)
  - CENTRAL NERVOUS SYSTEM LESION [None]
  - OPTIC NEURITIS [None]
  - HEADACHE [None]
